FAERS Safety Report 6808084-8 (Version None)
Quarter: 2010Q2

REPORT INFORMATION
  Report Type: 
  Country: None (occurrence: None)
  Receive Date: 20100629
  Receipt Date: 20090615
  Transmission Date: 20101027
  Serious: No
  Sender: FDA-Public Use
  Company Number: US-PFIZER INC-2009184374

PATIENT
  Age: 59 Year
  Sex: Male
  Weight: 82.5 kg

DRUGS (9)
  1. VIAGRA [Interacting]
     Indication: ERECTILE DYSFUNCTION
     Dosage: 50 MG, UNK
  2. CAVERJECT [Suspect]
     Indication: ERECTILE DYSFUNCTION
     Dosage: UNK
     Dates: start: 20090201, end: 20090201
  3. PREDNISONE [Interacting]
     Indication: NAUSEA
     Dosage: 5 MG, 2X/DAY
  4. LUPRON [Interacting]
     Dosage: UNK
  5. ALPROSTADIL [Suspect]
     Indication: ERECTILE DYSFUNCTION
     Dosage: UNK
  6. TAXOTERE [Concomitant]
     Dosage: UNK
  7. CASODEX [Concomitant]
     Dosage: UNK
  8. KETOCONAZOLE [Concomitant]
     Dosage: UNK
  9. DEXAMETHASONE [Concomitant]
     Dosage: 4 MG, UNK

REACTIONS (3)
  - DRUG INEFFECTIVE [None]
  - DRUG INTERACTION [None]
  - HICCUPS [None]
